FAERS Safety Report 23989399 (Version 1)
Quarter: 2024Q2

REPORT INFORMATION
  Report Type: Spontaneous
  Country: US (occurrence: US)
  Receive Date: 20240619
  Receipt Date: 20240619
  Transmission Date: 20240716
  Serious: No
  Sender: FDA-Public Use
  Company Number: US-ELI_LILLY_AND_COMPANY-US202406012773

PATIENT
  Age: 44 Year
  Sex: Male

DRUGS (13)
  1. MOUNJARO [Suspect]
     Active Substance: TIRZEPATIDE
     Indication: Diabetes mellitus
     Dosage: 2.5 MG, UNKNOWN
     Route: 058
  2. MOUNJARO [Suspect]
     Active Substance: TIRZEPATIDE
     Indication: Diabetes mellitus
     Dosage: 2.5 MG, UNKNOWN
     Route: 058
  3. MOUNJARO [Suspect]
     Active Substance: TIRZEPATIDE
     Indication: Diabetes mellitus
     Dosage: 2.5 MG, UNKNOWN
     Route: 058
  4. MOUNJARO [Suspect]
     Active Substance: TIRZEPATIDE
     Indication: Diabetes mellitus
     Dosage: 2.5 MG, UNKNOWN
     Route: 058
  5. MOUNJARO [Suspect]
     Active Substance: TIRZEPATIDE
     Indication: Diabetes mellitus
     Dosage: UNK MG, UNKNOWN
     Route: 058
  6. MOUNJARO [Suspect]
     Active Substance: TIRZEPATIDE
     Indication: Diabetes mellitus
     Dosage: 12.5 MG, UNKNOWN
     Route: 058
  7. MOUNJARO [Suspect]
     Active Substance: TIRZEPATIDE
     Indication: Diabetes mellitus
     Dosage: 12.5 MG, UNKNOWN
     Route: 058
  8. MOUNJARO [Suspect]
     Active Substance: TIRZEPATIDE
     Indication: Diabetes mellitus
     Dosage: 12.5 MG, UNKNOWN
     Route: 058
  9. MOUNJARO [Suspect]
     Active Substance: TIRZEPATIDE
     Indication: Diabetes mellitus
     Dosage: 12.5 MG, UNKNOWN
     Route: 058
  10. MOUNJARO [Suspect]
     Active Substance: TIRZEPATIDE
     Indication: Diabetes mellitus
     Dosage: 15 MG, UNKNOWN
     Route: 058
  11. MOUNJARO [Suspect]
     Active Substance: TIRZEPATIDE
     Indication: Diabetes mellitus
     Dosage: 15 MG, UNKNOWN
     Route: 058
  12. MOUNJARO [Suspect]
     Active Substance: TIRZEPATIDE
     Indication: Diabetes mellitus
     Dosage: 15 MG, UNKNOWN
     Route: 058
  13. MOUNJARO [Suspect]
     Active Substance: TIRZEPATIDE
     Indication: Diabetes mellitus
     Dosage: 15 MG, UNKNOWN
     Route: 058

REACTIONS (3)
  - Injection site erythema [Unknown]
  - Injection site rash [Unknown]
  - Incorrect dose administered [Unknown]
